FAERS Safety Report 8164050-4 (Version None)
Quarter: 2012Q1

REPORT INFORMATION
  Report Type: 
  Country: None (occurrence: None)
  Receive Date: 20120224
  Receipt Date: 20120215
  Transmission Date: 20120608
  Serious: Yes (Hospitalization, Other)
  Sender: FDA-Public Use
  Company Number: PHHY2012BR013602

PATIENT
  Sex: Female

DRUGS (10)
  1. MINILAX [Concomitant]
     Indication: CONSTIPATION
     Dosage: 2 DFA DAY, PRN
  2. MASSAGEOL [Concomitant]
     Indication: BONE PAIN
  3. CLONAZEPAM [Concomitant]
     Indication: SLEEP DISORDER
     Dosage: FROM 3 TO 5 TIMES A DAY
     Route: 048
  4. DORFLEX [Concomitant]
     Indication: BONE PAIN
     Dosage: 1 DFA DAY, PRN
     Route: 048
  5. SALONPAS [Concomitant]
     Indication: BONE PAIN
     Dosage: 1 DFA DAY, PRN
  6. AMLODIPINE BESYLATE [Concomitant]
     Indication: HYPERTENSION
     Dosage: 5 MG, PRN
     Route: 048
  7. APRACUR [Concomitant]
     Indication: BONE PAIN
     Dosage: 1 DFA DAY, PRN
     Route: 048
  8. TRILEPTAL [Suspect]
     Indication: DEMENTIA ALZHEIMER'S TYPE
     Dosage: 300 MG, 1 TABLET IN THE MORNING AND 1 AT NIGHT
  9. TIMOLOL MALEATE [Concomitant]
     Dosage: 0.5 MG, ONE DROP IN EACH EYE
  10. BETASERC [Concomitant]
     Indication: DEMENTIA ALZHEIMER'S TYPE
     Dosage: 2 MG, AT NIGHT
     Route: 048
     Dates: start: 20120214

REACTIONS (22)
  - BLINDNESS UNILATERAL [None]
  - FACIAL PAIN [None]
  - BONE PAIN [None]
  - HYPERTENSION [None]
  - MALAISE [None]
  - GAIT DISTURBANCE [None]
  - JOINT SWELLING [None]
  - CATARACT [None]
  - BLOOD PRESSURE DECREASED [None]
  - CONSTIPATION [None]
  - SWELLING FACE [None]
  - EYE PAIN [None]
  - EATING DISORDER [None]
  - NON-CARDIAC CHEST PAIN [None]
  - INSOMNIA [None]
  - DEPRESSED MOOD [None]
  - ORTHOSTATIC HYPOTENSION [None]
  - DIZZINESS [None]
  - GLAUCOMA [None]
  - NEURODEGENERATIVE DISORDER [None]
  - SYNCOPE [None]
  - VISUAL IMPAIRMENT [None]
